FAERS Safety Report 5846349-7 (Version None)
Quarter: 2008Q3

REPORT INFORMATION
  Report Type: 
  Country: None (occurrence: None)
  Receive Date: 20080815
  Receipt Date: 20080806
  Transmission Date: 20090109
  Serious: Yes (Other)
  Sender: FDA-Public Use
  Company Number: US-JNJFOC-20080801735

PATIENT
  Sex: Male
  Weight: 68.49 kg

DRUGS (26)
  1. DURAGESIC-100 [Suspect]
     Route: 062
  2. DURAGESIC-100 [Suspect]
     Route: 062
  3. DURAGESIC-100 [Suspect]
     Indication: PAIN IN EXTREMITY
     Route: 062
  4. DURAGESIC-100 [Suspect]
     Indication: NECK PAIN
     Route: 062
  5. DURAGESIC-100 [Suspect]
     Indication: BACK PAIN
     Route: 062
  6. ACTIQ [Suspect]
     Route: 048
  7. ACTIQ [Suspect]
     Route: 048
  8. ACTIQ [Suspect]
     Indication: PAIN IN EXTREMITY
     Route: 048
  9. ACTIQ [Suspect]
     Indication: NECK PAIN
     Route: 048
  10. ACTIQ [Suspect]
     Indication: BACK PAIN
     Route: 048
  11. CELEBREX [Concomitant]
  12. LEXAPRO [Concomitant]
  13. LEXAPRO [Concomitant]
  14. LEXAPRO [Concomitant]
  15. CYMBALTA [Concomitant]
  16. CYMBALTA [Concomitant]
  17. CYMBALTA [Concomitant]
  18. LYRICA [Concomitant]
  19. WELLBUTRIN [Concomitant]
  20. WELLBUTRIN [Concomitant]
     Dosage: START DATE MONTH WAS JULY 2006
  21. PROVIGIL [Concomitant]
  22. CLONAZEPAM [Concomitant]
  23. OXYCONTIN [Concomitant]
  24. MORPHINE SULFATE [Concomitant]
  25. MORPHINE SULFATE [Concomitant]
  26. MORPHINE SULFATE [Concomitant]

REACTIONS (4)
  - ANXIETY [None]
  - DEPRESSION [None]
  - FALL [None]
  - SEDATION [None]
